FAERS Safety Report 10997293 (Version 2)
Quarter: 2019Q1

REPORT INFORMATION
  Report Type: Report from Study
  Country: US (occurrence: US)
  Receive Date: 20150408
  Receipt Date: 20190318
  Transmission Date: 20190417
  Serious: Yes (Death, Other)
  Sender: FDA-Public Use
  Company Number: US-ROCHE-1560727

PATIENT

DRUGS (3)
  1. CYCLOPHOSPHAMIDE. [Suspect]
     Active Substance: CYCLOPHOSPHAMIDE
     Indication: NON-HODGKIN^S LYMPHOMA
     Dosage: ON DAY ONE AND THEN EVERY 21 D FOR 6 CYCLES
     Route: 065
  2. RITUXIMAB. [Suspect]
     Active Substance: RITUXIMAB
     Indication: NON-HODGKIN^S LYMPHOMA
     Dosage: ON DAY ONE AND THEN EVERY 21 D FOR 6 CYCLES.
     Route: 042
  3. PENTOSTATIN. [Suspect]
     Active Substance: PENTOSTATIN
     Indication: NON-HODGKIN^S LYMPHOMA
     Dosage: ON DAY ONE AND THEN EVERY 21 D FOR 6 CYCLES
     Route: 065

REACTIONS (25)
  - Vomiting [Unknown]
  - Diarrhoea [Unknown]
  - Death [Fatal]
  - Nausea [Unknown]
  - Breast cancer [Unknown]
  - Myelodysplastic syndrome [Unknown]
  - Neutropenia [Unknown]
  - Myalgia [Unknown]
  - Thrombocytopenia [Unknown]
  - Anaemia [Unknown]
  - Dizziness [Unknown]
  - Renal cell carcinoma [Unknown]
  - Malignant melanoma [Unknown]
  - Constipation [Unknown]
  - Fatigue [Unknown]
  - Infection [Unknown]
  - Dyspnoea [Unknown]
  - Renal failure [Unknown]
  - Diffuse large B-cell lymphoma [Unknown]
  - Basal cell carcinoma [Unknown]
  - Adenocarcinoma [Unknown]
  - Hodgkin^s disease [Unknown]
  - Squamous cell carcinoma of skin [Unknown]
  - Vision blurred [Unknown]
  - Febrile neutropenia [Unknown]
